FAERS Safety Report 5721958-4 (Version None)
Quarter: 2008Q2

REPORT INFORMATION
  Report Type: 
  Country: None (occurrence: None)
  Receive Date: 20080429
  Receipt Date: 20080402
  Transmission Date: 20081010
  Serious: No
  Sender: FDA-Public Use
  Company Number: US-BOEHRINGER INGELHEIM GMBH, GERMANY-2008-BP-05204BP

PATIENT
  Sex: Female

DRUGS (1)
  1. ATROVENT HFA [Suspect]
     Indication: BRONCHIECTASIS
     Route: 055
     Dates: end: 20080320

REACTIONS (7)
  - CHEST PAIN [None]
  - GINGIVAL SWELLING [None]
  - HYPOAESTHESIA ORAL [None]
  - LIP SWELLING [None]
  - MALAISE [None]
  - PAIN IN JAW [None]
  - TOOTHACHE [None]
